FAERS Safety Report 25157424 (Version 3)
Quarter: 2025Q2

REPORT INFORMATION
  Report Type: Spontaneous
  Country: GB (occurrence: GB)
  Receive Date: 20250403
  Receipt Date: 20250509
  Transmission Date: 20250716
  Serious: Yes (Life-Threatening, Hospitalization, Other)
  Sender: MYLAN
  Company Number: GB-MYLANLABS-2025M1026691

PATIENT
  Sex: Female

DRUGS (10)
  1. CLOZAPINE [Suspect]
     Active Substance: CLOZAPINE
     Indication: Schizophrenia
     Dosage: UNK, BID (TWICE DAILY, 75MG MORNING AND 225MG AT NIGHT)
     Dates: start: 20090706
  2. SERTRALINE [Concomitant]
     Active Substance: SERTRALINE HYDROCHLORIDE
     Dosage: 150 MILLIGRAM, QD
  3. CALCIUM CARBONATE\CHOLECALCIFEROL [Concomitant]
     Active Substance: CALCIUM CARBONATE\CHOLECALCIFEROL
  4. OMEPRAZOLE [Concomitant]
     Active Substance: OMEPRAZOLE
     Dosage: 20 MILLIGRAM, QD
  5. THIAMINE [Concomitant]
     Active Substance: THIAMINE
     Dosage: 300 MILLIGRAM, QD
  6. APIXABAN [Concomitant]
     Active Substance: APIXABAN
     Dosage: 2.5 MILLIGRAM, QD
  7. TAMOXIFEN [Concomitant]
     Active Substance: TAMOXIFEN
     Dosage: 20 MILLIGRAM, QD
  8. DOCUSATE [Concomitant]
     Active Substance: DOCUSATE
     Dosage: 200 MILLIGRAM, BID (TWICE DAILY)
  9. ACETAMINOPHEN [Concomitant]
     Active Substance: ACETAMINOPHEN
     Dosage: 1 GRAM, BID (TWICE DAILY)
  10. CAPECITABINE [Concomitant]
     Active Substance: CAPECITABINE

REACTIONS (2)
  - Breast cancer metastatic [Not Recovered/Not Resolved]
  - Haemoglobin decreased [Recovered/Resolved]

NARRATIVE: CASE EVENT DATE: 20200106
